FAERS Safety Report 6341701-8 (Version None)
Quarter: 2009Q3

REPORT INFORMATION
  Report Type: 
  Country: None (occurrence: None)
  Receive Date: 20090904
  Receipt Date: 20090902
  Transmission Date: 20100115
  Serious: Yes (Life-Threatening, Disabling)
  Sender: FDA-Public Use
  Company Number: AU-WYE-G04365209

PATIENT
  Sex: Female

DRUGS (1)
  1. PRISTIQ [Suspect]
     Dates: start: 20090801

REACTIONS (3)
  - DIZZINESS [None]
  - FEELING DRUNK [None]
  - ROAD TRAFFIC ACCIDENT [None]
